FAERS Safety Report 7692093-3 (Version None)
Quarter: 2011Q3

REPORT INFORMATION
  Report Type: 
  Country: None (occurrence: None)
  Receive Date: 20110818
  Receipt Date: 20110809
  Transmission Date: 20111222
  Serious: Yes (Hospitalization)
  Sender: FDA-Public Use
  Company Number: US-ASTRAZENECA-2011SE41037

PATIENT
  Age: 81 Year
  Sex: Female
  Weight: 91.6 kg

DRUGS (15)
  1. KEPPRA [Concomitant]
  2. FEXOFENADINE [Concomitant]
  3. ACETAMINOPHEN [Concomitant]
  4. RISPERDAL [Concomitant]
  5. LISINOPRIL [Concomitant]
  6. FLONASE [Concomitant]
  7. SEROQUEL XR [Suspect]
     Indication: SCHIZOPHRENIA
     Route: 048
  8. CALCIUM AND VITAMIN D [Concomitant]
  9. VITAMIN B [Concomitant]
     Dosage: MONTH
  10. LOVASTATIN [Concomitant]
  11. CLONIDINE [Concomitant]
  12. FOSAMAX [Concomitant]
  13. EXELON [Concomitant]
  14. ALBUTEROL SULFATE AUTOHALER [Concomitant]
  15. RISPERDAL [Concomitant]

REACTIONS (2)
  - HIP FRACTURE [None]
  - VERBAL ABUSE [None]
